FAERS Safety Report 9964435 (Version 1)
Quarter: 2014Q1

REPORT INFORMATION
  Report Type: Spontaneous
  Country: HU (occurrence: HU)
  Receive Date: 20140305
  Receipt Date: 20140305
  Transmission Date: 20141002
  Serious: Yes (Hospitalization)
  Sender: FDA-Public Use
  Company Number: HU-VERTEX PHARMACEUTICALS INC-2014-001110

PATIENT
  Age: 65 Year
  Sex: Female
  Weight: 69 kg

DRUGS (15)
  1. INCIVO [Suspect]
     Indication: CHRONIC HEPATITIS C
     Dosage: 1125 MG, BID
     Route: 048
     Dates: start: 20130814
  2. PEGINTERFERON ALFA 2A [Suspect]
     Indication: CHRONIC HEPATITIS C
     Dosage: 180 ?G, QW
     Route: 058
     Dates: start: 20130814
  3. RIBAVIRIN [Suspect]
     Indication: CHRONIC HEPATITIS C
     Dosage: 200 MG, QD
     Route: 048
     Dates: start: 20130814
  4. DESLORATADINE [Concomitant]
     Indication: PRURITUS
     Dosage: 5 MG, QD
     Route: 048
     Dates: start: 20131022, end: 20131030
  5. CLOBETASOL PROPIONATE [Concomitant]
     Indication: PRURITUS
     Dosage: DAILY DOSE 0.5/1G 1-2 TIMES
     Route: 061
     Dates: start: 20131022
  6. FAMOTIDINE [Concomitant]
     Indication: ABDOMINAL PAIN UPPER
     Dosage: 40 MG, BID
     Route: 048
     Dates: start: 20130905
  7. BISOPROLOL [Concomitant]
     Indication: HYPERTENSION
     Dosage: 2.5 MG, 4 TIMES A DAY
     Route: 048
     Dates: start: 20130712, end: 20140101
  8. LOSARTAN [Concomitant]
     Indication: HYPERTENSION
     Dosage: 25 MG, 4 TIMES A DAY
     Route: 048
     Dates: start: 20130712, end: 20140101
  9. BACILLUS CLAUSII [Concomitant]
     Indication: DIARRHOEA
     Dosage: 2 BILLION/5ML, QD
     Route: 048
     Dates: start: 20130821, end: 20130823
  10. BACILLUS CLAUSII [Concomitant]
     Indication: PYREXIA
  11. DIOSMECTITE [Concomitant]
     Indication: VOMITING
     Dosage: 3 G, QD
     Route: 048
     Dates: start: 20130821, end: 20130823
  12. DIOSMECTITE [Concomitant]
     Indication: DIARRHOEA
  13. DIOSMECTITE [Concomitant]
     Indication: PYREXIA
  14. PANTOPRAZOL [Concomitant]
     Indication: ABDOMINAL PAIN UPPER
     Dosage: 40 MG, BID
     Route: 048
     Dates: start: 20130828, end: 20130905
  15. RED BLOOD CELL TRANSFUSION [Concomitant]
     Indication: ANAEMIA
     Dosage: 2 UNITS, BID
     Route: 042
     Dates: start: 20130926, end: 20130930

REACTIONS (1)
  - Eczema [Unknown]
